FAERS Safety Report 19040758 (Version 1)
Quarter: 2021Q1

REPORT INFORMATION
  Report Type: Spontaneous
  Country: IT (occurrence: IT)
  Receive Date: 20210322
  Receipt Date: 20210322
  Transmission Date: 20210420
  Serious: Yes (Hospitalization, Other)
  Sender: FDA-Public Use
  Company Number: IT-BRISTOL-MYERS SQUIBB COMPANY-BMS-2021-028107

PATIENT
  Age: 67 Year
  Sex: Female

DRUGS (3)
  1. KENALOG [Suspect]
     Active Substance: TRIAMCINOLONE ACETONIDE
     Indication: TENOSYNOVITIS
     Dosage: HAND: 40
     Route: 065
     Dates: start: 20190829
  2. XYLOCAINE [Concomitant]
     Active Substance: LIDOCAINE HYDROCHLORIDE
     Indication: TENOSYNOVITIS
     Dosage: HAND: 1 PERCENT
     Route: 065
     Dates: start: 20190829
  3. SYNVISC [Concomitant]
     Active Substance: HYLAN G-F 20
     Indication: TENOSYNOVITIS
     Dosage: KNEES: ONE 48 MG/ 6 ML
     Route: 065
     Dates: start: 20190829

REACTIONS (1)
  - Pain [Unknown]

NARRATIVE: CASE EVENT DATE: 20190913
